FAERS Safety Report 16060167 (Version 1)
Quarter: 2019Q1

REPORT INFORMATION
  Report Type: Spontaneous
  Country: US (occurrence: US)
  Receive Date: 20190312
  Receipt Date: 20190312
  Transmission Date: 20190418
  Serious: Yes (Other)
  Sender: FDA-Public Use
  Company Number: US-JNJFOC-20190305620

PATIENT
  Sex: Female

DRUGS (9)
  1. TYLENOL [Suspect]
     Active Substance: ACETAMINOPHEN
     Indication: DYSMENORRHOEA
     Dosage: EVERY SIX HOURS ONCE A MONTH
     Route: 065
  2. TYLENOL [Suspect]
     Active Substance: ACETAMINOPHEN
     Indication: LIGAMENT SPRAIN
     Dosage: EVERY SIX HOURS ONCE A MONTH
     Route: 065
  3. ZOLOFT [Interacting]
     Active Substance: SERTRALINE HYDROCHLORIDE
     Indication: PRODUCT USED FOR UNKNOWN INDICATION
     Route: 065
  4. TYLENOL [Suspect]
     Active Substance: ACETAMINOPHEN
     Indication: LIGAMENT SPRAIN
     Dosage: EVERY SIX HOURS ONCE A MONTH
     Route: 065
  5. TYLENOL [Suspect]
     Active Substance: ACETAMINOPHEN
     Indication: DYSMENORRHOEA
     Dosage: EVERY SIX HOURS ONCE A MONTH
     Route: 065
  6. TYLENOL [Suspect]
     Active Substance: ACETAMINOPHEN
     Indication: LIGAMENT SPRAIN
     Dosage: EVERY SIX HOURS ONCE A MONTH
     Route: 065
  7. TYLENOL [Suspect]
     Active Substance: ACETAMINOPHEN
     Indication: LIGAMENT SPRAIN
     Dosage: EVERY SIX HOURS ONCE A MONTH
     Route: 065
  8. TYLENOL [Suspect]
     Active Substance: ACETAMINOPHEN
     Indication: DYSMENORRHOEA
     Dosage: EVERY SIX HOURS ONCE A MONTH
     Route: 065
  9. TYLENOL [Suspect]
     Active Substance: ACETAMINOPHEN
     Indication: DYSMENORRHOEA
     Dosage: EVERY SIX HOURS ONCE A MONTH
     Route: 065

REACTIONS (9)
  - Anxiety [Unknown]
  - Contraindicated product administered [Unknown]
  - Suicidal ideation [Unknown]
  - Obsessive thoughts [Unknown]
  - Product use in unapproved indication [Unknown]
  - Agitation [Unknown]
  - Violence-related symptom [Unknown]
  - Drug interaction [Unknown]
  - Drug ineffective [Unknown]
